FAERS Safety Report 19668621 (Version 1)
Quarter: 2021Q3

REPORT INFORMATION
  Report Type: Spontaneous
  Country: US (occurrence: US)
  Receive Date: 20210806
  Receipt Date: 20210806
  Transmission Date: 20211014
  Serious: Yes (Other)
  Sender: FDA-Public Use
  Company Number: US-TOLMAR, INC.-21US029316

PATIENT
  Age: 22 Year
  Sex: Female

DRUGS (3)
  1. AZITHROMICIN [Concomitant]
     Active Substance: AZITHROMYCIN
     Indication: PELVIC INFLAMMATORY DISEASE
     Dosage: 1000 MILLIGRAM
     Route: 042
  2. METRONIDAZOLE. [Suspect]
     Active Substance: METRONIDAZOLE
     Indication: PELVIC INFLAMMATORY DISEASE
     Dosage: 500 MILLIGRAM
     Route: 042
  3. PIPERACILLIN AND TAZOBACTAM [Concomitant]
     Active Substance: PIPERACILLIN SODIUM\TAZOBACTAM SODIUM
     Indication: PELVIC INFLAMMATORY DISEASE
     Dosage: 3.375 MILLIGRAM
     Route: 042

REACTIONS (2)
  - Peritonitis [Recovered/Resolved]
  - Toxic shock syndrome [Recovered/Resolved]
